FAERS Safety Report 9158280 (Version 1)
Quarter: 2013Q1

REPORT INFORMATION
  Report Type: Report from Study
  Country: GB (occurrence: PL)
  Receive Date: 20130312
  Receipt Date: 20130312
  Transmission Date: 20140127
  Serious: Yes (Life-Threatening, Hospitalization, Disabling)
  Sender: FDA-Public Use
  Company Number: GB-CELGENEUS-129-20785-07070475

PATIENT
  Age: 64 Year
  Sex: Female

DRUGS (7)
  1. THALIDOMIDE [Suspect]
     Indication: PLASMA CELL MYELOMA
     Dosage: 200 MILLIGRAM
     Route: 048
     Dates: start: 20070423
  2. BISOCARD [Concomitant]
     Indication: HYPERTENSION
     Dosage: .005 GRAM
     Route: 048
     Dates: start: 20070524, end: 20070613
  3. TERTENSIF SR [Concomitant]
     Indication: HYPERTENSION
     Dosage: .0015 GRAM
     Route: 048
  4. AMLOZEK [Concomitant]
     Indication: HYPERTENSION
     Dosage: .005 GRAM
     Route: 048
  5. ACARD [Concomitant]
     Indication: THROMBOSIS PROPHYLAXIS
     Dosage: .075 GRAM
     Route: 048
     Dates: start: 20070423
  6. HYDROXYZINE [Concomitant]
     Indication: MOOD ALTERED
     Dosage: .01 GRAM
     Route: 048
     Dates: start: 200704
  7. MIANSERIN [Concomitant]
     Indication: MOOD ALTERED
     Dosage: .1 GRAM
     Route: 048
     Dates: start: 20070605

REACTIONS (4)
  - Adams-Stokes syndrome [Recovered/Resolved with Sequelae]
  - Asthenia [None]
  - Bradycardia [None]
  - Affective disorder [None]
